FAERS Safety Report 6976721-3 (Version None)
Quarter: 2010Q3

REPORT INFORMATION
  Report Type: 
  Country: None (occurrence: None)
  Receive Date: 20100910
  Receipt Date: 20100827
  Transmission Date: 20110219
  Serious: Yes (Hospitalization, Other)
  Sender: FDA-Public Use
  Company Number: US-ELI_LILLY_AND_COMPANY-US201007002674

PATIENT
  Sex: Female

DRUGS (8)
  1. FORTEO [Suspect]
     Indication: OSTEOPOROSIS
     Dosage: 20 UG, DAILY (1/D)
     Dates: start: 20100701
  2. TRAZODONE HCL [Concomitant]
     Dosage: 400 MG, UNK
  3. CLONAZEPAM [Concomitant]
     Dosage: 0.5 MG, 4/D
  4. CLONIDINE [Concomitant]
     Dosage: 0.2 MG, UNK
  5. CYMBALTA [Concomitant]
     Dosage: 90 MG, UNK
  6. FISH OIL [Concomitant]
  7. CALCIUM [Concomitant]
  8. VITAMIN D [Concomitant]

REACTIONS (7)
  - BLOOD PRESSURE FLUCTUATION [None]
  - CHEST PAIN [None]
  - FATIGUE [None]
  - INJECTION SITE PAIN [None]
  - MUSCULOSKELETAL PAIN [None]
  - NAUSEA [None]
  - PAIN IN EXTREMITY [None]
